FAERS Safety Report 5606093-8 (Version None)
Quarter: 2008Q1

REPORT INFORMATION
  Report Type: 
  Country: None (occurrence: None)
  Receive Date: 20080123
  Receipt Date: 20080123
  Transmission Date: 20080703
  Serious: No
  Sender: FDA-Public Use
  Company Number: None

PATIENT
  Age: 24 Year
  Sex: Female

DRUGS (2)
  1. LAMOTRIGINE [Suspect]
     Indication: CONVULSION
     Dosage: 25 MG ONCE DAILY PO
     Route: 048
     Dates: start: 20071122, end: 20071123
  2. LAMOTRIGINE [Suspect]
     Indication: MOOD ALTERED
     Dosage: 25 MG ONCE DAILY PO
     Route: 048
     Dates: start: 20071122, end: 20071123

REACTIONS (2)
  - OEDEMA [None]
  - RASH [None]
